FAERS Safety Report 5262036-0 (Version None)
Quarter: 2007Q1

REPORT INFORMATION
  Report Type: 
  Country: None (occurrence: None)
  Receive Date: 20061208
  Receipt Date: 20060803
  Transmission Date: 20070707
  Serious: Yes (Other)
  Sender: FDA-Public Use
  Company Number: USA-2006-0024795

PATIENT
  Age: 43 Year
  Sex: Female

DRUGS (6)
  1. OXYCONTIN [Suspect]
     Indication: CYSTITIS INTERSTITIAL
     Dosage: 80 MG, Q21H, INHALATION
     Route: 055
     Dates: start: 20050101, end: 20060101
  2. OXYCODONE HCL [Concomitant]
  3. PYRIDIUM [Concomitant]
  4. ELMIRON [Concomitant]
  5. WELLBUTRIN [Concomitant]
  6. CIPRO [Concomitant]

REACTIONS (2)
  - INADEQUATE ANALGESIA [None]
  - INTENTIONAL DRUG MISUSE [None]
